FAERS Safety Report 9269867 (Version 2)
Quarter: 2013Q2

REPORT INFORMATION
  Report Type: Report from Study
  Country: US (occurrence: US)
  Receive Date: 20130503
  Receipt Date: 20130604
  Transmission Date: 20140414
  Serious: Yes (Hospitalization)
  Sender: FDA-Public Use
  Company Number: US-ACTELION-A-NJ2009-23393

PATIENT
  Age: 34 Year
  Sex: Female

DRUGS (3)
  1. TRACLEER [Suspect]
     Indication: PULMONARY ARTERIAL HYPERTENSION
     Dosage: UNK
     Route: 048
  2. TRACLEER [Suspect]
     Dosage: UNK
     Route: 048
     Dates: start: 20080115, end: 20081120
  3. REVATIO [Suspect]

REACTIONS (13)
  - Bone pain [Unknown]
  - Pain of skin [Unknown]
  - Heart rate abnormal [Unknown]
  - Dyspnoea [Unknown]
  - Migraine [Unknown]
  - Pyrexia [Unknown]
  - Pulmonary congestion [Unknown]
  - Muscle strain [Unknown]
  - Cough [Unknown]
  - Angina pectoris [Unknown]
  - Headache [Unknown]
  - Local swelling [Unknown]
  - Malaise [Unknown]
